FAERS Safety Report 17950441 (Version 1)
Quarter: 2020Q2

REPORT INFORMATION
  Report Type: Spontaneous
  Country: IT (occurrence: IT)
  Receive Date: 20200626
  Receipt Date: 20200626
  Transmission Date: 20200714
  Serious: Yes (Death, Hospitalization, Other)
  Sender: FDA-Public Use
  Company Number: IT-AMGEN-ITASP2020100768

PATIENT
  Age: 62 Year
  Sex: Female

DRUGS (3)
  1. XGEVA [Suspect]
     Active Substance: DENOSUMAB
     Indication: METASTASES TO BONE
     Dosage: UNK
     Route: 065
  2. SUNITINIB [Concomitant]
     Active Substance: SUNITINIB
     Indication: RENAL CANCER
     Dosage: UNK
  3. SUNITINIB [Concomitant]
     Active Substance: SUNITINIB
     Indication: METASTASES TO BONE

REACTIONS (4)
  - Breakthrough pain [Recovering/Resolving]
  - Death [Fatal]
  - Anaemia [Unknown]
  - Anxiety [Unknown]
